FAERS Safety Report 7890203-6 (Version None)
Quarter: 2011Q4

REPORT INFORMATION
  Report Type: 
  Country: None (occurrence: None)
  Receive Date: 20111103
  Receipt Date: 20110728
  Transmission Date: 20120403
  Serious: No
  Sender: FDA-Public Use
  Company Number: US-AMGEN-USASP2011025807

PATIENT
  Age: 72 Year
  Sex: Female
  Weight: 91.156 kg

DRUGS (2)
  1. ENBREL [Suspect]
     Indication: RHEUMATOID ARTHRITIS
     Dosage: 50 MG, QWK
     Dates: start: 20100706
  2. ENBREL [Suspect]
     Dates: start: 20101201

REACTIONS (6)
  - EXOSTOSIS [None]
  - ROTATOR CUFF SYNDROME [None]
  - RHEUMATOID ARTHRITIS [None]
  - INJECTION SITE HAEMORRHAGE [None]
  - FALL [None]
  - BURSITIS [None]
